FAERS Safety Report 12168674 (Version 2)
Quarter: 2016Q1

REPORT INFORMATION
  Report Type: Spontaneous
  Country: IT (occurrence: IT)
  Receive Date: 20160310
  Receipt Date: 20160318
  Transmission Date: 20160526
  Serious: Yes (Hospitalization)
  Sender: FDA-Public Use
  Company Number: IT-PFIZER INC-2016146443

PATIENT
  Age: 71 Year
  Sex: Male

DRUGS (4)
  1. PANTORC [Suspect]
     Active Substance: PANTOPRAZOLE SODIUM
     Dosage: UNK DAILY (QD)
     Route: 048
  2. DEFLAN [Suspect]
     Active Substance: DEFLAZACORT
     Dosage: UNK, QD
     Route: 048
  3. PROPYPHENAZONE [Concomitant]
     Active Substance: PROPYPHENAZONE
     Dosage: UNK
     Route: 048
  4. FLUIMUCIL [Suspect]
     Active Substance: ACETYLCYSTEINE
     Dosage: UNK, QD
     Route: 048

REACTIONS (6)
  - Hypersensitivity [Unknown]
  - Cough [Unknown]
  - Rash [Unknown]
  - Abdominal pain upper [Unknown]
  - Musculoskeletal pain [Unknown]
  - Pharyngitis [Unknown]

NARRATIVE: CASE EVENT DATE: 20151128
